FAERS Safety Report 8886511 (Version 1)
Quarter: 2012Q4

REPORT INFORMATION
  Report Type: 
  Country: BR (occurrence: BR)
  Receive Date: 20121105
  Receipt Date: 20121105
  Transmission Date: 20130627
  Serious: No
  Sender: FDA-Public Use
  Company Number: PHHO2012BR015531

PATIENT
  Age: 48 Year
  Sex: Female
  Weight: 65 kg

DRUGS (2)
  1. AMN107 [Suspect]
     Indication: CHRONIC MYELOID LEUKAEMIA
     Dosage: 800 mg, BID
     Route: 048
     Dates: start: 20110614
  2. AMN107 [Suspect]
     Dosage: 800 mg, BID
     Route: 048
     Dates: start: 20120829

REACTIONS (1)
  - Hypermagnesaemia [Recovered/Resolved]
